FAERS Safety Report 9116051 (Version 2)
Quarter: 2013Q1

REPORT INFORMATION
  Report Type: Spontaneous
  Country: FR (occurrence: FR)
  Receive Date: 20130225
  Receipt Date: 20130227
  Transmission Date: 20140127
  Serious: Yes (Hospitalization)
  Sender: FDA-Public Use
  Company Number: FR-PFIZER INC-2013064468

PATIENT
  Age: 63 Year
  Sex: Male

DRUGS (15)
  1. TAZOCILLINE [Suspect]
     Indication: LUNG DISORDER
     Dosage: 4 G X 3 DAILY
     Route: 042
     Dates: start: 20130117, end: 20130121
  2. BACTRIM [Suspect]
     Indication: LUNG DISORDER
     Dosage: 1600 MG X 3 DAILY
     Dates: start: 20120117, end: 20130122
  3. TAVANIC [Suspect]
     Indication: LUNG DISORDER
     Dosage: 500 MG, 1X/DAY
     Dates: start: 20130117
  4. AMBISOME [Suspect]
     Indication: LUNG DISORDER
     Dosage: UNK
     Route: 042
     Dates: start: 20130118, end: 20130123
  5. SOLUPRED [Concomitant]
     Dosage: 20 MG, 1X/DAY
  6. CELLCEPT [Concomitant]
     Dosage: 750 MG, 2X/DAY
  7. PROGRAF [Concomitant]
     Dosage: 5.5 MG
  8. LASILIX SPECIAL [Concomitant]
     Dosage: 0.5 DF, 3X/DAY
  9. DELURSAN [Concomitant]
     Dosage: 2 DF, 3X/DAY
  10. TEMERIT [Concomitant]
     Dosage: 5 MG, 1X/DAY
  11. KARDEGIC [Concomitant]
     Dosage: 160 MG, 1X/DAY
  12. TRIATEC [Concomitant]
  13. EUPANTOL [Concomitant]
     Dosage: 20 MG
  14. NOVONORM [Concomitant]
     Dosage: 2 MG, 1X/DAY
  15. SPECIAFOLDINE [Concomitant]
     Indication: PNEUMONIA
     Dosage: UNK
     Dates: start: 20130117

REACTIONS (2)
  - Renal impairment [Recovered/Resolved]
  - Liver injury [Recovering/Resolving]
